FAERS Safety Report 4344542-6 (Version None)
Quarter: 2004Q2

REPORT INFORMATION
  Report Type: 
  Country: None (occurrence: None)
  Receive Date: 20040422
  Receipt Date: 20040122
  Transmission Date: 20050107
  Serious: Yes (Hospitalization)
  Sender: FDA-Public Use
  Company Number: US-MERCK-0401USA01776

PATIENT
  Age: 30 Year
  Sex: Male

DRUGS (5)
  1. ASPIRIN [Concomitant]
     Route: 065
  2. GEMFIBROZIL [Suspect]
     Route: 065
  3. INSULIN [Concomitant]
     Indication: DIABETES MELLITUS INSULIN-DEPENDENT
     Route: 065
  4. NPH INSULIN [Concomitant]
     Indication: DIABETES MELLITUS INSULIN-DEPENDENT
     Route: 065
  5. PRINIVIL [Suspect]
     Indication: HYPERTENSION
     Route: 048
     Dates: start: 20010316, end: 20020905

REACTIONS (7)
  - BLOOD GLUCOSE DECREASED [None]
  - BLOOD GLUCOSE INCREASED [None]
  - FLANK PAIN [None]
  - HAEMATOCRIT DECREASED [None]
  - HYPOVOLAEMIA [None]
  - RENAL FAILURE ACUTE [None]
  - RHABDOMYOLYSIS [None]
